FAERS Safety Report 24557085 (Version 2)
Quarter: 2024Q4

REPORT INFORMATION
  Report Type: Spontaneous
  Country: FR (occurrence: FR)
  Receive Date: 20241028
  Receipt Date: 20241126
  Transmission Date: 20250115
  Serious: Yes (Hospitalization, Other)
  Sender: AUROBINDO
  Company Number: FR-AFSSAPS-PC2024000810

PATIENT
  Age: 55 Year
  Sex: Male
  Weight: 70 kg

DRUGS (4)
  1. RISPERIDONE [Suspect]
     Active Substance: RISPERIDONE
     Indication: Psychotic disorder
     Dosage: UNK
     Route: 048
  2. CITALOPRAM HYDROBROMIDE [Suspect]
     Active Substance: CITALOPRAM HYDROBROMIDE
     Indication: Depression
     Dosage: UNK
     Route: 048
  3. ATROPINE SULFATE [Suspect]
     Active Substance: ATROPINE SULFATE
     Indication: Salivary hypersecretion
     Dosage: 3 DOSAGE FORM, TWO TIMES A DAY (3 GOUTTES 2 FOIS AU TOTAL)
     Route: 048
     Dates: start: 20240904, end: 20240904
  4. AMITRIPTYLINE HYDROCHLORIDE [Suspect]
     Active Substance: AMITRIPTYLINE HYDROCHLORIDE
     Indication: Depression
     Dosage: UNK
     Route: 048

REACTIONS (9)
  - Anticholinergic syndrome [Recovered/Resolved]
  - Agitation [Recovering/Resolving]
  - Ataxia [Recovering/Resolving]
  - Confusional state [Recovering/Resolving]
  - Hyperthermia [Recovering/Resolving]
  - Mydriasis [Recovering/Resolving]
  - Sinus tachycardia [Recovering/Resolving]
  - Intentional product misuse [Recovered/Resolved]
  - Off label use [Recovered/Resolved]

NARRATIVE: CASE EVENT DATE: 20240904
